FAERS Safety Report 26101282 (Version 3)
Quarter: 2025Q4

REPORT INFORMATION
  Report Type: Spontaneous
  Country: US (occurrence: US)
  Receive Date: 20251128
  Receipt Date: 20251208
  Transmission Date: 20260118
  Serious: Yes (Death, Hospitalization)
  Sender: pharmaAND
  Company Number: US-Pharmaand-2025001207

PATIENT
  Age: 61 Year
  Sex: Male
  Weight: 73 kg

DRUGS (15)
  1. RUBRACA [Suspect]
     Active Substance: RUCAPARIB CAMSYLATE
     Indication: Eccrine carcinoma
     Dosage: 600MG Q12HOURS
     Route: 048
     Dates: start: 20251120, end: 20251121
  2. CARBOPLATIN [Suspect]
     Active Substance: CARBOPLATIN
     Indication: Pancreatic carcinoma metastatic
     Dates: start: 20250917
  3. PACLITAXEL [Suspect]
     Active Substance: PACLITAXEL
     Indication: Pancreatic carcinoma metastatic
     Dates: start: 20250917
  4. DEXAMETHASONE [Concomitant]
     Active Substance: DEXAMETHASONE
     Indication: Steroid therapy
     Dosage: 2 MG BY MOUTH THREE TIMES A DAY
     Route: 048
     Dates: start: 20250915
  5. DEXAMETHASONE [Concomitant]
     Active Substance: DEXAMETHASONE
     Indication: Steroid therapy
     Dosage: 8 MG THREE TIMES A WEEK BY MOUTH
     Route: 048
     Dates: start: 20250915
  6. DEXAMETHASONE [Concomitant]
     Active Substance: DEXAMETHASONE
     Indication: Steroid therapy
     Dosage: FOUR TIMES A DAY (QID)
     Route: 048
     Dates: start: 20250915
  7. VALIUM [Concomitant]
     Active Substance: DIAZEPAM
     Indication: Anxiety
     Route: 048
     Dates: start: 20250101
  8. CYMBALTA [Concomitant]
     Active Substance: DULOXETINE HYDROCHLORIDE
     Indication: Neuropathy peripheral
     Dosage: 60 MG QD PO
     Route: 048
     Dates: start: 202411
  9. VITAMIN D [Concomitant]
     Active Substance: VITAMIN D NOS
     Indication: Vitamin D decreased
     Route: 048
     Dates: start: 2025
  10. SYNTHROID [Concomitant]
     Active Substance: LEVOTHYROXINE SODIUM
     Indication: Hypothyroidism
     Route: 048
     Dates: start: 2024
  11. EMLA [Concomitant]
     Active Substance: LIDOCAINE\PRILOCAINE
     Dates: start: 2024
  12. ZOFRAN [Concomitant]
     Active Substance: ONDANSETRON HYDROCHLORIDE
     Indication: Prophylaxis of nausea and vomiting
     Dosage: AS NEEDED
     Route: 048
     Dates: start: 2023
  13. ROXICODONE [Concomitant]
     Active Substance: OXYCODONE HYDROCHLORIDE
     Indication: Pain prophylaxis
     Dosage: AS NEEDED
     Route: 048
     Dates: start: 20250910
  14. DELTASONE [Concomitant]
     Active Substance: PREDNISONE
     Indication: Steroid therapy
     Route: 048
     Dates: start: 20250915
  15. COMPAZINE [Concomitant]
     Active Substance: PROCHLORPERAZINE MALEATE
     Indication: Prophylaxis of nausea and vomiting
     Dosage: AS NEEDED
     Route: 048
     Dates: start: 2023

REACTIONS (4)
  - Death [Fatal]
  - Dehydration [Not Recovered/Not Resolved]
  - Hospice care [Unknown]
  - Off label use [Recovered/Resolved]

NARRATIVE: CASE EVENT DATE: 20251121
